FAERS Safety Report 15150257 (Version 1)
Quarter: 2018Q3

REPORT INFORMATION
  Report Type: Spontaneous
  Country: DE (occurrence: DE)
  Receive Date: 20180716
  Receipt Date: 20180716
  Transmission Date: 20181010
  Serious: Yes (Hospitalization)
  Sender: FDA-Public Use
  Company Number: DE-US WORLDMEDS, LLC-STA_00016615

PATIENT
  Age: 66 Year
  Sex: Male

DRUGS (1)
  1. APOMORPHINE HYDROCHLORIDE [Suspect]
     Active Substance: APOMORPHINE HYDROCHLORIDE
     Indication: PARKINSON^S DISEASE
     Dosage: AM TO 9 PM AT A RATE OF 5MG/H AND A BOLUS OF 3MG UP TO FOUR TIMES DAILY
     Route: 058

REACTIONS (2)
  - Skin necrosis [Unknown]
  - Nodule [Unknown]

NARRATIVE: CASE EVENT DATE: 20101123
